FAERS Safety Report 10236746 (Version 1)
Quarter: 2014Q2

REPORT INFORMATION
  Report Type: Spontaneous
  Country: US (occurrence: US)
  Receive Date: 20140613
  Receipt Date: 20140613
  Transmission Date: 20141212
  Serious: Yes (Hospitalization)
  Sender: FDA-Public Use
  Company Number: US-GLAXOSMITHKLINE-A1076986A

PATIENT
  Sex: Female

DRUGS (3)
  1. VENTOLIN [Suspect]
     Indication: PRODUCT USED FOR UNKNOWN INDICATION
     Route: 065
  2. PRO-AIR [Suspect]
     Indication: ASTHMA
     Route: 055
  3. INHALER [Suspect]

REACTIONS (9)
  - Inflammation [Unknown]
  - Asthma [Unknown]
  - Therapeutic response decreased [Unknown]
  - Dysgeusia [Unknown]
  - Dyspnoea [Unknown]
  - Fatigue [Unknown]
  - Intentional product misuse [Unknown]
  - Drug ineffective [Unknown]
  - Product quality issue [Unknown]
